FAERS Safety Report 17693261 (Version 2)
Quarter: 2020Q2

REPORT INFORMATION
  Report Type: Spontaneous
  Country: JP (occurrence: JP)
  Receive Date: 20200422
  Receipt Date: 20200624
  Transmission Date: 20200714
  Serious: Yes (Hospitalization)
  Sender: FDA-Public Use
  Company Number: JP-AMGEN-JPNSP2020056581

PATIENT
  Age: 82 Year
  Sex: Female

DRUGS (2)
  1. EVENITY [Suspect]
     Active Substance: ROMOSOZUMAB-AQQG
     Indication: OSTEOPOROSIS
     Dosage: 210 MILLIGRAM
     Route: 058
     Dates: start: 201907, end: 20200319
  2. EVENITY [Suspect]
     Active Substance: ROMOSOZUMAB-AQQG
     Dosage: 210 MILLIGRAM
     Route: 058
     Dates: start: 2020

REACTIONS (2)
  - Head discomfort [Recovering/Resolving]
  - Dyspnoea [Recovering/Resolving]

NARRATIVE: CASE EVENT DATE: 20200319
